FAERS Safety Report 19057217 (Version 1)
Quarter: 2021Q1

REPORT INFORMATION
  Report Type: Report from Study
  Country: FR (occurrence: FR)
  Receive Date: 20210324
  Receipt Date: 20210324
  Transmission Date: 20210420
  Serious: Yes (Death, Other)
  Sender: FDA-Public Use
  Company Number: FR-BRISTOL-MYERS SQUIBB COMPANY-BMS-2021-027848

PATIENT
  Age: 71 Year
  Sex: Female

DRUGS (1)
  1. NIVOLUMAB [Suspect]
     Active Substance: NIVOLUMAB
     Indication: OROPHARYNGEAL CANCER
     Dosage: 3 MILLIGRAM/KILOGRAM, Q2WK
     Route: 042
     Dates: start: 20210301, end: 20210301

REACTIONS (2)
  - Respiratory distress [Fatal]
  - Off label use [Unknown]

NARRATIVE: CASE EVENT DATE: 20210310
